FAERS Safety Report 8454250-8 (Version None)
Quarter: 2012Q2

REPORT INFORMATION
  Report Type: 
  Country: None (occurrence: None)
  Receive Date: 20120620
  Receipt Date: 20120607
  Transmission Date: 20120825
  Serious: Yes (Other)
  Sender: FDA-Public Use
  Company Number: CHPA2012US012540

PATIENT
  Sex: Female

DRUGS (2)
  1. IBUPROFEN (ADVIL) [Concomitant]
     Dosage: UNK
  2. EXCEDRIN EXTRA STRENGTH TABLETS [Suspect]
     Indication: MIGRAINE
     Dosage: 1-2 DF, QD
     Route: 048
     Dates: start: 19870101

REACTIONS (7)
  - NECK PAIN [None]
  - SPINAL COLUMN INJURY [None]
  - FIBROMYALGIA [None]
  - INCORRECT DRUG ADMINISTRATION DURATION [None]
  - RHEUMATOID ARTHRITIS [None]
  - SOFT TISSUE INJURY [None]
  - UNDERDOSE [None]
